FAERS Safety Report 7091031-4 (Version None)
Quarter: 2010Q4

REPORT INFORMATION
  Report Type: 
  Country: None (occurrence: None)
  Receive Date: 20101012
  Receipt Date: 20091006
  Transmission Date: 20110411
  Serious: Yes (Death)
  Sender: FDA-Public Use
  Company Number: 1000009312

PATIENT
  Age: 56 Year
  Sex: Male

DRUGS (1)
  1. LEXAPRO [Suspect]
     Dates: start: 20080101

REACTIONS (1)
  - DEATH [None]
